FAERS Safety Report 17692434 (Version 1)
Quarter: 2020Q2

REPORT INFORMATION
  Report Type: Spontaneous
  Country: US (occurrence: US)
  Receive Date: 20200421
  Receipt Date: 20200421
  Transmission Date: 20200714
  Serious: Yes (Life-Threatening, Hospitalization, Disabling)
  Sender: FDA-Public Use
  Company Number: None

PATIENT
  Age: 72 Year
  Sex: Female
  Weight: 55.8 kg

DRUGS (11)
  1. HYDROCORTISONE. [Concomitant]
     Active Substance: HYDROCORTISONE
  2. LEVOTHYROXINE. [Concomitant]
     Active Substance: LEVOTHYROXINE
  3. CABERGOLIN [Concomitant]
     Active Substance: CABERGOLINE
  4. VITAMIN D [Concomitant]
     Active Substance: VITAMIN D NOS
  5. TETRACYCLINE HCI [Suspect]
     Active Substance: TETRACYCLINE HYDROCHLORIDE
     Indication: URINARY TRACT INFECTION
     Dosage: ?          QUANTITY:30 CAPSULE(S);?
     Route: 048
     Dates: start: 20200407, end: 20200415
  6. LOVENAX [Concomitant]
  7. VITAMIN C [Concomitant]
     Active Substance: ASCORBIC ACID
  8. MESALAMINE. [Concomitant]
     Active Substance: MESALAMINE
  9. SODIUM BICARB [Concomitant]
     Active Substance: SODIUM BICARBONATE
  10. MIDODRINE [Concomitant]
     Active Substance: MIDODRINE
  11. IRON [Concomitant]
     Active Substance: IRON

REACTIONS (3)
  - Renal failure [None]
  - Vomiting [None]
  - Dehydration [None]

NARRATIVE: CASE EVENT DATE: 20200415
